FAERS Safety Report 4823452-1 (Version None)
Quarter: 2005Q4

REPORT INFORMATION
  Report Type: 
  Country: None (occurrence: None)
  Receive Date: 20051107
  Receipt Date: 20051024
  Transmission Date: 20060501
  Serious: Yes (Other)
  Sender: FDA-Public Use
  Company Number: 2005147130

PATIENT
  Sex: Male
  Weight: 129.2752 kg

DRUGS (3)
  1. SUDAFED 12 HOUR [Suspect]
     Indication: SINUS DISORDER
     Dosage: 2 (30 MG) TABLETS EVERY 4 HOURS, ORAL
     Route: 048
     Dates: start: 20030101, end: 20030101
  2. CARDIOVASCULAR SYSTEM DRUGS (CARDIOVASCULAR SYSTEM DRUGS) [Concomitant]
  3. OBETROL [Concomitant]

REACTIONS (4)
  - BLEPHAROSPASM [None]
  - DYSKINESIA [None]
  - MYOCARDIAL INFARCTION [None]
  - RASH [None]
